FAERS Safety Report 7297028-3 (Version None)
Quarter: 2011Q1

REPORT INFORMATION
  Report Type: 
  Country: None (occurrence: None)
  Receive Date: 20110216
  Receipt Date: 20110209
  Transmission Date: 20110831
  Serious: Yes (Other)
  Sender: FDA-Public Use
  Company Number: SE-B.I. PHARMACEUTICALS,INC./RIDGEFIELD-2010-SW-00321SW

PATIENT
  Sex: Male
  Weight: 105 kg

DRUGS (6)
  1. LANTUS [Concomitant]
     Indication: TYPE 2 DIABETES MELLITUS
  2. ENALAPRIL [Concomitant]
     Dosage: 5 MG
  3. TROMBYL [Concomitant]
     Dosage: 75 MG
     Dates: end: 20100201
  4. LEVOTHYROXINE SODIUM [Concomitant]
     Indication: HYPOTHYROIDISM
  5. PRADAXA [Suspect]
     Indication: KNEE ARTHROPLASTY
     Dates: start: 20100203, end: 20100212
  6. TROMBYL [Concomitant]
     Dosage: 75 MG
     Dates: start: 20100204

REACTIONS (2)
  - ISCHAEMIC STROKE [None]
  - HEMIPARESIS [None]
